FAERS Safety Report 18847302 (Version 1)
Quarter: 2021Q1

REPORT INFORMATION
  Report Type: Report from Study
  Country: None (occurrence: CA)
  Receive Date: 20210204
  Receipt Date: 20210204
  Transmission Date: 20210419
  Serious: Yes (Hospitalization, Other)
  Sender: FDA-Public Use
  Company Number: CA-ABBVIE-21K-028-3757879-00

PATIENT
  Age: 63 Year
  Sex: Female

DRUGS (3)
  1. HUMIRA [Suspect]
     Active Substance: ADALIMUMAB
     Indication: ANKYLOSING SPONDYLITIS
     Route: 058
     Dates: start: 20190223, end: 202012
  2. HUMIRA [Suspect]
     Active Substance: ADALIMUMAB
     Route: 058
     Dates: start: 20210120
  3. COVID?19 VACCINE NOS. [Suspect]
     Active Substance: COVID-19 VACCINE NOS
     Indication: COVID-19 IMMUNISATION
     Route: 030
     Dates: start: 20210107, end: 20210107

REACTIONS (12)
  - Ankylosing spondylitis [Not Recovered/Not Resolved]
  - Blood disorder [Recovered/Resolved]
  - Peripheral swelling [Recovering/Resolving]
  - Musculoskeletal stiffness [Not Recovered/Not Resolved]
  - Pancreatitis [Recovered/Resolved]
  - Blood triglycerides increased [Recovered/Resolved]
  - Loss of consciousness [Recovered/Resolved]
  - Cyanosis [Unknown]
  - Joint swelling [Unknown]
  - Pain in extremity [Recovering/Resolving]
  - Pancreatitis [Recovered/Resolved]
  - Hospitalisation [Unknown]

NARRATIVE: CASE EVENT DATE: 201908
